FAERS Safety Report 17306948 (Version 1)
Quarter: 2020Q1

REPORT INFORMATION
  Report Type: Spontaneous
  Country: CA (occurrence: CA)
  Receive Date: 20200123
  Receipt Date: 20200123
  Transmission Date: 20200409
  Serious: Yes (Other)
  Sender: FDA-Public Use
  Company Number: CA-ACCORD-170369

PATIENT
  Age: 56 Year
  Sex: Male

DRUGS (3)
  1. TYLENOL [Concomitant]
     Active Substance: ACETAMINOPHEN
     Dosage: REGULAR STRENGTH 325 MG
  2. AMLODIPINE [Suspect]
     Active Substance: AMLODIPINE BESYLATE
     Indication: HYPERTENSION
     Dosage: 1 EVERY 1 DAYS
     Route: 048
  3. CODEINE PHOSPHATE/PARACETAMOL [Concomitant]
     Active Substance: ACETAMINOPHEN\CODEINE PHOSPHATE

REACTIONS (4)
  - Haemorrhage [Recovered/Resolved]
  - Epistaxis [Recovered/Resolved]
  - Coagulation time prolonged [Recovered/Resolved]
  - Malaise [Recovered/Resolved]
